FAERS Safety Report 6804265-8 (Version None)
Quarter: 2010Q2

REPORT INFORMATION
  Report Type: 
  Country: None (occurrence: None)
  Receive Date: 20100628
  Receipt Date: 20070220
  Transmission Date: 20101027
  Serious: No
  Sender: FDA-Public Use
  Company Number: US-PFIZER INC-2007013790

PATIENT
  Sex: Female
  Weight: 61.23 kg

DRUGS (2)
  1. XALATAN [Suspect]
     Indication: GLAUCOMA
     Dosage: 0.005%
     Dates: start: 20060101
  2. NITROGLYCERIN [Concomitant]

REACTIONS (1)
  - EYE PAIN [None]
